FAERS Safety Report 7354997-0 (Version None)
Quarter: 2011Q1

REPORT INFORMATION
  Report Type: 
  Country: None (occurrence: None)
  Receive Date: 20110316
  Receipt Date: 20100810
  Transmission Date: 20110831
  Serious: Yes (Hospitalization, Other)
  Sender: FDA-Public Use
  Company Number: US-BAYER-201022164NA

PATIENT
  Sex: Female
  Weight: 65.76 kg

DRUGS (25)
  1. ASCORBIC ACID [Concomitant]
  2. CENTRUM [Concomitant]
     Dosage: UNK
     Dates: start: 20040101
  3. OCELLA [Suspect]
  4. ANTIBIOTICS [Concomitant]
  5. CYMBALTA [Concomitant]
     Indication: DEPRESSION
  6. WELLBUTRIN XL [Concomitant]
     Indication: DEPRESSION
     Dosage: 300 MG, UNK
     Dates: start: 20060101, end: 20090101
  7. YAZ [Suspect]
     Indication: CONTRACEPTION
  8. ATIVAN [Concomitant]
     Indication: ANXIETY
  9. YAZ [Suspect]
     Indication: PREMENSTRUAL SYNDROME
  10. YAZ [Suspect]
  11. TOPAMAX [Concomitant]
     Indication: MIGRAINE
     Dosage: UNK
     Dates: start: 20071101
  12. ALEVE [Concomitant]
  13. AMBIEN [Concomitant]
     Indication: INSOMNIA
     Dosage: 12.5 MG, UNK
     Dates: start: 20070701
  14. YASMIN [Suspect]
     Indication: CONTRACEPTION
  15. UNKNOWN [Concomitant]
     Dosage: UNK
     Dates: start: 20070101
  16. MOTRIN [Concomitant]
     Indication: HEADACHE
     Dosage: 200 MG, UNK
  17. ZOLOFT [Concomitant]
     Indication: DEPRESSION
     Dosage: 100 MG, UNK
  18. WELLBUTRIN XL [Concomitant]
     Indication: ANXIETY
  19. RELPAX [Concomitant]
     Indication: MIGRAINE
     Dosage: 40 MG, UNK
  20. MIDOL IB [Concomitant]
     Indication: PREMENSTRUAL SYNDROME
     Dosage: 250 MG, UNK
  21. YASMIN [Suspect]
     Indication: PREMENSTRUAL SYNDROME
  22. SOMA [Concomitant]
     Indication: MUSCLE RELAXANT THERAPY
     Dosage: 350 MG, PRN
     Dates: start: 20080901
  23. ACETAMINOPHEN [Concomitant]
     Indication: ARTHRITIS
     Dosage: 500 G, UNK
  24. YASMIN [Suspect]
     Indication: ACNE
     Dosage: UNK
     Route: 048
     Dates: start: 20020101, end: 20090101
  25. YAZ [Suspect]
     Indication: ACNE
     Dosage: UNK
     Dates: start: 20060101, end: 20090101

REACTIONS (4)
  - GALLBLADDER DISORDER [None]
  - CHOLECYSTITIS ACUTE [None]
  - PAIN [None]
  - CHOLELITHIASIS [None]
